FAERS Safety Report 12602540 (Version 1)
Quarter: 2016Q3

REPORT INFORMATION
  Report Type: Spontaneous
  Country: US (occurrence: US)
  Receive Date: 20160728
  Receipt Date: 20160728
  Transmission Date: 20161109
  Serious: No
  Sender: FDA-Public Use
  Company Number: US-BAUSCH-BL-2015-015344

PATIENT
  Age: 75 Year
  Sex: Female
  Weight: 49.94 kg

DRUGS (2)
  1. OPCON-A [Suspect]
     Active Substance: NAPHAZOLINE HYDROCHLORIDE\PHENIRAMINE MALEATE
     Indication: LACRIMATION INCREASED
  2. OPCON-A [Suspect]
     Active Substance: NAPHAZOLINE HYDROCHLORIDE\PHENIRAMINE MALEATE
     Indication: EYE PRURITUS
     Dosage: INSTILL ONE DROP IN EACH EYE.
     Route: 047
     Dates: start: 2015, end: 20150615

REACTIONS (4)
  - Foreign body in eye [Not Recovered/Not Resolved]
  - Vision blurred [Recovered/Resolved]
  - Discomfort [Not Recovered/Not Resolved]
  - Eye pain [Not Recovered/Not Resolved]

NARRATIVE: CASE EVENT DATE: 2015
